FAERS Safety Report 8866152 (Version 3)
Quarter: 2012Q4

REPORT INFORMATION
  Report Type: Report from Study
  Country: GR (occurrence: GR)
  Receive Date: 20121025
  Receipt Date: 20121119
  Transmission Date: 20130627
  Serious: Yes (Hospitalization)
  Sender: FDA-Public Use
  Company Number: GR-PFIZER INC-2012255583

PATIENT
  Age: 50 Year
  Sex: Male
  Weight: 122 kg

DRUGS (17)
  1. TEMSIROLIMUS [Suspect]
     Indication: PANCREAS CARCINOMA
     Dosage: 25 mg, weekly
     Route: 042
     Dates: start: 20120529
  2. GEMZAR [Suspect]
     Dosage: 2000 mg, every 2 weeks
     Route: 042
     Dates: start: 20120529, end: 20120529
  3. GEMZAR [Suspect]
     Dosage: 1600 mg, every two weeks
     Route: 042
     Dates: start: 20120612
  4. ZOFRON [Concomitant]
     Indication: PREMEDICATION
     Dosage: 8 mg, every therapy
     Route: 042
     Dates: start: 20120529
  5. ZANTAC [Concomitant]
     Indication: PREMEDICATION
     Dosage: 50 mg, every therapy
     Route: 042
     Dates: start: 20120529
  6. FENISTIL [Concomitant]
     Indication: PREMEDICATION
     Dosage: 8 mg, every therapy
     Route: 042
     Dates: start: 20120529
  7. DEXAMETHAZON [Concomitant]
     Indication: PREMEDICATION
     Dosage: 4 mg, every therapy
     Route: 042
     Dates: start: 20120529
  8. SALOSPIR [Concomitant]
     Indication: PROPHYLAXIS
     Dosage: 100 mg, 1x/day
     Route: 048
     Dates: end: 20120511
  9. LOBIVON [Concomitant]
     Indication: HYPERTENSION
     Dosage: 5 mg, 1x/day
     Route: 048
  10. EXFORGE [Concomitant]
     Indication: HYPERTENSION
     Dosage: amlodipine besilate 5mg/valsartan 160mg, 1x/day
     Route: 048
  11. LVORMAX [Concomitant]
     Indication: THROMBOSIS
     Dosage: 10 ml, 1x/day
     Dates: start: 20120619, end: 20120722
  12. ARIXTRA [Concomitant]
     Indication: THROMBOSIS
     Dosage: 7.5 mg, 1x/day
     Dates: start: 20120723, end: 20120726
  13. SOLU-MEDROL [Concomitant]
     Indication: CERVIX EDEMA
     Dosage: 125 mg, 2x/day
     Route: 042
     Dates: start: 20120725, end: 20120725
  14. SOLU-MEDROL [Concomitant]
     Indication: ALLERGY
     Dosage: 125 mg, 1x/day
     Route: 042
     Dates: start: 20120726, end: 20120726
  15. PULMICORT [Concomitant]
     Indication: CERVIX EDEMA
     Dosage: 10 mg, 1x/day
     Dates: start: 20120725, end: 20120725
  16. PULMICORT [Concomitant]
     Indication: ALLERGY
     Dosage: 10 mg, 3x/day
     Dates: start: 20120726, end: 20120726
  17. PULMICORT [Concomitant]
     Dosage: 10 mg, 1x/day
     Dates: start: 20120727, end: 20120727

REACTIONS (1)
  - Lung infection [Recovered/Resolved]
